FAERS Safety Report 7780426-9 (Version None)
Quarter: 2011Q3

REPORT INFORMATION
  Report Type: 
  Country: None (occurrence: None)
  Receive Date: 20110927
  Receipt Date: 20110922
  Transmission Date: 20111222
  Serious: Yes (Other)
  Sender: FDA-Public Use
  Company Number: GB-PFIZER INC-2011225570

PATIENT
  Age: 53 Year
  Sex: Female

DRUGS (1)
  1. VARENICLINE TARTRATE [Suspect]
     Dosage: 0.5 MG, UNK
     Dates: start: 20110921

REACTIONS (2)
  - RENAL PAIN [None]
  - CHILLS [None]
